FAERS Safety Report 5878537-8 (Version None)
Quarter: 2008Q3

REPORT INFORMATION
  Report Type: 
  Country: None (occurrence: None)
  Receive Date: 20080909
  Receipt Date: 20080829
  Transmission Date: 20090109
  Serious: Yes (Other)
  Sender: FDA-Public Use
  Company Number: 2008AL010243

PATIENT
  Age: 61 Year
  Sex: Male

DRUGS (6)
  1. DICLOFENAC SODIUM [Suspect]
     Dosage: 50 MG; QD; PO
     Route: 048
     Dates: start: 20051001
  2. OMEPRAZOLE [Concomitant]
  3. ETANERCEPT [Concomitant]
  4. FOLIC ACID [Concomitant]
  5. METHOTREXATE SODIUM [Concomitant]
  6. SULFASALAZINE [Concomitant]

REACTIONS (1)
  - TONSIL CANCER [None]
